FAERS Safety Report 18486214 (Version 1)
Quarter: 2020Q4

REPORT INFORMATION
  Report Type: Spontaneous
  Country: US (occurrence: US)
  Receive Date: 20201110
  Receipt Date: 20201110
  Transmission Date: 20210114
  Serious: Yes (Other)
  Sender: FDA-Public Use
  Company Number: None

PATIENT
  Age: 64 Year
  Sex: Female

DRUGS (1)
  1. LISINOPRIL. [Suspect]
     Active Substance: LISINOPRIL
     Indication: HYPERTENSION
     Route: 048
     Dates: start: 20200624, end: 20201020

REACTIONS (5)
  - Chromaturia [None]
  - Oedema [None]
  - Dyspnoea [None]
  - Urine output decreased [None]
  - Blood pressure increased [None]

NARRATIVE: CASE EVENT DATE: 20201020
